FAERS Safety Report 15433831 (Version 1)
Quarter: 2018Q4

REPORT INFORMATION
  Report Type: Spontaneous
  Country: JP (occurrence: JP)
  Receive Date: 20180927
  Receipt Date: 20180927
  Transmission Date: 20190204
  Serious: Yes (Hospitalization)
  Sender: FDA-Public Use
  Company Number: JP-TEVA-2017-JP-004264J

PATIENT
  Age: 88 Year
  Sex: Female

DRUGS (3)
  1. ALMYLAR TABLET 25 [Suspect]
     Active Substance: ATENOLOL
     Indication: GASTRIC FISTULA
     Dosage: ROUTE OF ADMIN: GASTROSTOMY
     Route: 050
     Dates: start: 201708
  2. GASMOTIN [Concomitant]
     Active Substance: MOSAPRIDE CITRATE
     Dosage: 5 MILLIGRAM DAILY;
     Route: 048
     Dates: start: 201712
  3. RACOL-NF [Concomitant]
     Dosage: 900 GRAM DAILY;
     Route: 048

REACTIONS (3)
  - Pneumonia [Unknown]
  - Wrong technique in product usage process [Unknown]
  - Gastrooesophageal reflux disease [Unknown]

NARRATIVE: CASE EVENT DATE: 2017
